FAERS Safety Report 10793890 (Version 3)
Quarter: 2015Q1

REPORT INFORMATION
  Report Type: Spontaneous
  Country: US (occurrence: US)
  Receive Date: 20150213
  Receipt Date: 20150330
  Transmission Date: 20150721
  Serious: Yes (Other)
  Sender: FDA-Public Use
  Company Number: US-PFIZER INC-2015047791

PATIENT
  Age: 88 Year
  Sex: Female

DRUGS (1)
  1. ROBITUSSIN MAXIMUM STRENGTH COUGH PLUS CHEST CONGESTION DM [Suspect]
     Active Substance: DEXTROMETHORPHAN HYDROBROMIDE\GUAIFENESIN
     Indication: INFLUENZA
     Dosage: 10 MG, 2X/DAY

REACTIONS (8)
  - Cardiac disorder [Unknown]
  - Feeling hot [Unknown]
  - Chills [Unknown]
  - Heart rate increased [Unknown]
  - Cardiac fibrillation [Recovered/Resolved]
  - Hot flush [Unknown]
  - Dyspnoea [Unknown]
  - Drug ineffective [Unknown]
